FAERS Safety Report 4844730-6 (Version None)
Quarter: 2005Q4

REPORT INFORMATION
  Report Type: 
  Country: None (occurrence: None)
  Receive Date: 20051201
  Receipt Date: 20051201
  Transmission Date: 20060501
  Serious: No
  Sender: FDA-Public Use
  Company Number: None

PATIENT
  Sex: Male
  Weight: 90.7194 kg

DRUGS (2)
  1. METHADONE [Suspect]
     Indication: BACK PAIN
     Dosage: 20 MG   TID   PO
     Route: 048
  2. PHENYTOIN [Suspect]
     Indication: BACK PAIN

REACTIONS (7)
  - ADVERSE EVENT [None]
  - CONFUSIONAL STATE [None]
  - DISORIENTATION [None]
  - DRUG CLEARANCE INCREASED [None]
  - DRUG INTERACTION [None]
  - DRUG LEVEL DECREASED [None]
  - OVERDOSE [None]
